FAERS Safety Report 9354722 (Version 2)
Quarter: 2013Q2

REPORT INFORMATION
  Report Type: Spontaneous
  Country: JP (occurrence: JP)
  Receive Date: 20130619
  Receipt Date: 20130626
  Transmission Date: 20140414
  Serious: Yes (Life-Threatening, Hospitalization, Disabling)
  Sender: FDA-Public Use
  Company Number: JP-B.I. PHARMACEUTICALS,INC./RIDGEFIELD-2013-BI-17144NB

PATIENT
  Age: 57 Year
  Sex: Female
  Weight: 48.9 kg

DRUGS (6)
  1. PRAZAXA [Suspect]
     Indication: ATRIAL FIBRILLATION
     Dosage: 220 MG
     Route: 048
     Dates: start: 2012, end: 20130602
  2. THYRADIN S [Concomitant]
     Dosage: 5 MG
     Route: 048
  3. BAYASPIRIN [Concomitant]
     Dosage: 100 MG
     Route: 048
  4. HALFDIGOXIN [Concomitant]
     Dosage: 0.125 MG
     Route: 048
  5. DIART [Concomitant]
     Dosage: 30 MG
     Route: 048
  6. NEXIUM [Concomitant]
     Dosage: 20 MG
     Route: 048

REACTIONS (2)
  - Embolic cerebral infarction [Recovered/Resolved with Sequelae]
  - Off label use [Unknown]
